FAERS Safety Report 22222701 (Version 4)
Quarter: 2023Q2

REPORT INFORMATION
  Report Type: Other
  Country: JP (occurrence: JP)
  Receive Date: 20230418
  Receipt Date: 20230629
  Transmission Date: 20230722
  Serious: Yes (Other)
  Sender: FDA-Public Use
  Company Number: JP-ASTELLAS-2023JP004683

PATIENT
  Age: 71 Year
  Sex: Male
  Weight: 55.8 kg

DRUGS (9)
  1. XTANDI [Suspect]
     Active Substance: ENZALUTAMIDE
     Indication: Hormone-dependent prostate cancer
     Route: 048
     Dates: start: 20220425, end: 20220626
  2. XTANDI [Suspect]
     Active Substance: ENZALUTAMIDE
     Indication: Metastases to bone
     Route: 048
     Dates: start: 20220627
  3. DEGARELIX [Concomitant]
     Active Substance: DEGARELIX
     Indication: Hormone-dependent prostate cancer
     Route: 058
     Dates: start: 20220318, end: 20220522
  4. DEGARELIX [Concomitant]
     Active Substance: DEGARELIX
     Indication: Metastases to bone
     Route: 058
     Dates: start: 20220523
  5. DENOSUMAB [Concomitant]
     Active Substance: DENOSUMAB
     Indication: Hormone-dependent prostate cancer
     Route: 058
     Dates: start: 20220829
  6. DENOSUMAB [Concomitant]
     Active Substance: DENOSUMAB
     Indication: Metastases to bone
  7. CALCIUM CARBONATE\CHOLECALCIFEROL\MAGNESIUM CARBONATE [Concomitant]
     Active Substance: CALCIUM CARBONATE\CHOLECALCIFEROL\MAGNESIUM CARBONATE
     Indication: Hormone-dependent prostate cancer
     Route: 048
     Dates: start: 20220829
  8. CALCIUM CARBONATE\CHOLECALCIFEROL\MAGNESIUM CARBONATE [Concomitant]
     Active Substance: CALCIUM CARBONATE\CHOLECALCIFEROL\MAGNESIUM CARBONATE
     Indication: Metastases to bone
  9. AMLODIPINE [Concomitant]
     Active Substance: AMLODIPINE BESYLATE
     Indication: Hypertension
     Route: 048

REACTIONS (4)
  - Gastric haemorrhage [Recovering/Resolving]
  - Hepatocellular carcinoma [Not Recovered/Not Resolved]
  - Prescribed underdose [Unknown]
  - Off label use [Unknown]

NARRATIVE: CASE EVENT DATE: 20220425
